FAERS Safety Report 10789640 (Version 2)
Quarter: 2015Q1

REPORT INFORMATION
  Report Type: Spontaneous
  Country: FR (occurrence: FR)
  Receive Date: 20150212
  Receipt Date: 20150225
  Transmission Date: 20150721
  Serious: Yes (Hospitalization)
  Sender: FDA-Public Use
  Company Number: FR-JNJFOC-20150207279

PATIENT
  Age: 27 Year
  Sex: Male
  Weight: 65 kg

DRUGS (1)
  1. SIMPONI [Suspect]
     Active Substance: GOLIMUMAB
     Indication: ANKYLOSING SPONDYLITIS
     Dosage: 20 INJECTIONS
     Route: 058
     Dates: start: 201304, end: 201412

REACTIONS (1)
  - Anaplastic large cell lymphoma T- and null-cell types stage IV [Unknown]

NARRATIVE: CASE EVENT DATE: 201412
